FAERS Safety Report 4687964-6 (Version None)
Quarter: 2005Q2

REPORT INFORMATION
  Report Type: 
  Country: None (occurrence: None)
  Receive Date: 20050608
  Receipt Date: 20050526
  Transmission Date: 20051028
  Serious: Yes (Life-Threatening, Hospitalization, Other)
  Sender: FDA-Public Use
  Company Number: US-2005-008987

PATIENT
  Age: 33 Year
  Sex: Male
  Weight: 88.6 kg

DRUGS (1)
  1. ULTRAVIST 300 [Suspect]
     Indication: COMPUTERISED TOMOGRAM HEAD
     Dosage: 100 ML, 1 DOSE, INTRAVENOUS
     Route: 042
     Dates: start: 20050525, end: 20050525

REACTIONS (9)
  - CARDIAC ARREST [None]
  - CONVULSION [None]
  - EMOTIONAL DISTRESS [None]
  - ERYTHEMA [None]
  - EYELID OEDEMA [None]
  - LOSS OF CONSCIOUSNESS [None]
  - POSTURING [None]
  - STRIDOR [None]
  - SWELLING FACE [None]
